FAERS Safety Report 6868633-0 (Version None)
Quarter: 2010Q3

REPORT INFORMATION
  Report Type: 
  Country: None (occurrence: None)
  Receive Date: 20100722
  Receipt Date: 20080729
  Transmission Date: 20110219
  Serious: Yes (Other)
  Sender: FDA-Public Use
  Company Number: US-PFIZER INC-2008045837

PATIENT
  Sex: Female
  Weight: 61.363 kg

DRUGS (5)
  1. CHANTIX [Suspect]
     Indication: SMOKING CESSATION THERAPY
     Dates: start: 20080101
  2. CLONAZEPAM [Concomitant]
     Route: 048
  3. LEXAPRO [Concomitant]
     Route: 048
  4. PREVACID [Concomitant]
     Route: 048
  5. IBUPROFEN [Concomitant]
     Route: 048

REACTIONS (6)
  - ANXIETY [None]
  - BRUXISM [None]
  - DEPRESSION [None]
  - DYSPEPSIA [None]
  - IRRITABILITY [None]
  - NAUSEA [None]
